FAERS Safety Report 5308308-2 (Version None)
Quarter: 2007Q2

REPORT INFORMATION
  Report Type: 
  Country: None (occurrence: None)
  Receive Date: 20070423
  Receipt Date: 20070423
  Transmission Date: 20071010
  Serious: Yes (Other)
  Sender: FDA-Public Use
  Company Number: None

PATIENT
  Age: 7 Year
  Sex: Male
  Weight: 22.6799 kg

DRUGS (1)
  1. LISTERINE AGENT COOL BLUE        LISTERINE [Suspect]
     Indication: DENTAL CARE
     Dosage: 10 ML   X2 A DAY   PO
     Route: 048
     Dates: start: 20070203, end: 20070410

REACTIONS (2)
  - NO THERAPEUTIC RESPONSE [None]
  - PHARYNGITIS STREPTOCOCCAL [None]
